FAERS Safety Report 19594463 (Version 1)
Quarter: 2021Q3

REPORT INFORMATION
  Report Type: Spontaneous
  Country: ES (occurrence: ES)
  Receive Date: 20210722
  Receipt Date: 20210722
  Transmission Date: 20211014
  Serious: Yes (Other)
  Sender: FDA-Public Use
  Company Number: ES-JNJFOC-20160624567

PATIENT

DRUGS (5)
  1. REMICADE [Suspect]
     Active Substance: INFLIXIMAB
     Indication: INFLAMMATORY BOWEL DISEASE
  2. STELARA [Suspect]
     Active Substance: USTEKINUMAB
     Indication: COLITIS ULCERATIVE
  3. REMICADE [Suspect]
     Active Substance: INFLIXIMAB
     Indication: COLITIS ULCERATIVE
  4. STELARA [Suspect]
     Active Substance: USTEKINUMAB
     Indication: CROHN^S DISEASE
     Route: 058
  5. REMICADE [Suspect]
     Active Substance: INFLIXIMAB
     Indication: CROHN^S DISEASE
     Route: 042

REACTIONS (18)
  - Skin lesion [Unknown]
  - Varicella [Unknown]
  - Leukopenia [Unknown]
  - Skin candida [Unknown]
  - Vulvovaginal candidiasis [Unknown]
  - Drug ineffective [Unknown]
  - Basal cell carcinoma [Unknown]
  - Demyelination [Unknown]
  - Leiomyosarcoma [Unknown]
  - Disseminated tuberculosis [Unknown]
  - Pharyngitis [Unknown]
  - Infectious mononucleosis [Unknown]
  - Therapeutic product effect incomplete [Unknown]
  - Congestive cardiomyopathy [Unknown]
  - Psoriasis [Unknown]
  - Infusion related reaction [Unknown]
  - Pneumonia [Unknown]
  - Amnesia [Unknown]
